FAERS Safety Report 7384233-0 (Version None)
Quarter: 2011Q1

REPORT INFORMATION
  Report Type: 
  Country: None (occurrence: None)
  Receive Date: 20110322
  Receipt Date: 20110301
  Transmission Date: 20110831
  Serious: Yes (Hospitalization, Other)
  Sender: FDA-Public Use
  Company Number: JPI-P-014069

PATIENT
  Age: 76 Year
  Sex: Male

DRUGS (4)
  1. XYREM [Suspect]
     Indication: SOMNOLENCE
     Dosage: 4.5 GM (2.25 GM, 2 IN 1 D), 9GM (4.5GM, 2 IN 1 D), ORAL
     Route: 048
     Dates: start: 20100427
  2. XYREM [Suspect]
     Indication: NARCOLEPSY
     Dosage: 4.5 GM (2.25 GM, 2 IN 1 D), 9GM (4.5GM, 2 IN 1 D), ORAL
     Route: 048
     Dates: start: 20100427
  3. XYREM [Suspect]
     Indication: SOMNOLENCE
     Dosage: 4.5 GM (2.25 GM, 2 IN 1 D), 9GM (4.5GM, 2 IN 1 D), ORAL
     Route: 048
     Dates: start: 20030729
  4. XYREM [Suspect]
     Indication: NARCOLEPSY
     Dosage: 4.5 GM (2.25 GM, 2 IN 1 D), 9GM (4.5GM, 2 IN 1 D), ORAL
     Route: 048
     Dates: start: 20030729

REACTIONS (5)
  - COLLAPSE OF LUNG [None]
  - BACK INJURY [None]
  - OSTEOARTHRITIS [None]
  - GAIT DISTURBANCE [None]
  - CONDITION AGGRAVATED [None]
